FAERS Safety Report 16264617 (Version 8)
Quarter: 2021Q1

REPORT INFORMATION
  Report Type: Spontaneous
  Country: US (occurrence: US)
  Receive Date: 20190502
  Receipt Date: 20210125
  Transmission Date: 20210419
  Serious: No
  Sender: FDA-Public Use
  Company Number: US-PFIZER INC-2019179446

PATIENT
  Age: 57 Year
  Sex: Female
  Weight: 63 kg

DRUGS (4)
  1. LYRICA [Suspect]
     Active Substance: PREGABALIN
     Indication: FIBROMYALGIA
     Dosage: 250 MG, DAILY (50MG IN THE MORNING AND 50MG IN THE AFTERNOON THEN 150MG AT BED TIME)
     Dates: start: 20171015
  2. LYRICA [Suspect]
     Active Substance: PREGABALIN
     Dosage: 75 MG, 1X/DAY (TAKE 1 CAPSULE (75 MG TOTAL) BY MOUTH AT BEDTIME/ 75 MG HS (AT BEDTIME))
     Route: 048
     Dates: start: 202009, end: 2020
  3. LYRICA [Suspect]
     Active Substance: PREGABALIN
     Dosage: 50 MG, 1X/DAY  (1 CAPSULE (50 MG TOTAL) BY MOUTH EVERY MORNING)
     Route: 048
     Dates: start: 20200903, end: 2020
  4. LYRICA [Suspect]
     Active Substance: PREGABALIN
     Dosage: 175 MG, DAILY (LYRICA 50 MG AM, 50 MG PM, 75 MG HS)

REACTIONS (1)
  - Insomnia [Not Recovered/Not Resolved]

NARRATIVE: CASE EVENT DATE: 2018
